FAERS Safety Report 19173667 (Version 1)
Quarter: 2021Q2

REPORT INFORMATION
  Report Type: Spontaneous
  Country: US (occurrence: US)
  Receive Date: 20210423
  Receipt Date: 20210423
  Transmission Date: 20210717
  Serious: No
  Sender: FDA-Public Use
  Company Number: US-ASTRAZENECA-2021A263168

PATIENT
  Age: 32021 Day
  Sex: Female
  Weight: 54.4 kg

DRUGS (1)
  1. SYMBICORT [Suspect]
     Active Substance: BUDESONIDE\FORMOTEROL FUMARATE DIHYDRATE
     Indication: ASTHMA
     Dosage: 160?4.5 MCG,, AT NIGHT
     Route: 055

REACTIONS (9)
  - Chest discomfort [Unknown]
  - Productive cough [Recovered/Resolved]
  - Oropharyngeal discomfort [Unknown]
  - Product dose omission issue [Unknown]
  - Intentional product misuse [Unknown]
  - Dysphonia [Recovered/Resolved]
  - Product taste abnormal [Unknown]
  - Wrong technique in device usage process [Unknown]
  - Device use issue [Unknown]

NARRATIVE: CASE EVENT DATE: 20210318
